FAERS Safety Report 24879764 (Version 1)
Quarter: 2025Q1

REPORT INFORMATION
  Report Type: Spontaneous
  Country: JP (occurrence: JP)
  Receive Date: 20250123
  Receipt Date: 20250123
  Transmission Date: 20250409
  Serious: Yes (Other)
  Sender: MAYNE
  Company Number: JP-MAYNE PHARMA-2025MYN000039

PATIENT

DRUGS (1)
  1. SOLTAMOX [Suspect]
     Active Substance: TAMOXIFEN CITRATE
     Indication: Breast cancer stage I
     Dosage: 20 MG, QD
     Route: 048

REACTIONS (1)
  - Agranulocytosis [Recovered/Resolved]
